FAERS Safety Report 20088893 (Version 1)
Quarter: 2021Q4

REPORT INFORMATION
  Report Type: Spontaneous
  Country: CN (occurrence: CN)
  Receive Date: 20211119
  Receipt Date: 20211119
  Transmission Date: 20220303
  Serious: Yes (Hospitalization)
  Sender: FDA-Public Use
  Company Number: CN-drreddys-LIT/CHN/21/0143738

PATIENT
  Age: 17 Year
  Sex: Male

DRUGS (7)
  1. OLANZAPINE [Suspect]
     Active Substance: OLANZAPINE
     Indication: Major depression
     Route: 048
     Dates: start: 20180529, end: 20180530
  2. OLANZAPINE [Suspect]
     Active Substance: OLANZAPINE
     Route: 048
     Dates: start: 20180531, end: 20180601
  3. OLANZAPINE [Suspect]
     Active Substance: OLANZAPINE
     Route: 048
     Dates: start: 20180602, end: 20180604
  4. OLANZAPINE [Suspect]
     Active Substance: OLANZAPINE
     Route: 048
     Dates: start: 20180605, end: 20180610
  5. FLUVOXAMINE [Suspect]
     Active Substance: FLUVOXAMINE
     Indication: Major depression
  6. FLUVOXAMINE [Suspect]
     Active Substance: FLUVOXAMINE
     Dosage: INCREASED TO 100 MG/DAY ON JUNE 1
     Dates: start: 20180601
  7. FLUVOXAMINE [Suspect]
     Active Substance: FLUVOXAMINE
     Dosage: INCREASED TO 150 MG/DAY ON JUNE 7
     Dates: start: 20180607

REACTIONS (3)
  - Hypokalaemia [Recovered/Resolved]
  - Muscular weakness [Not Recovered/Not Resolved]
  - Drug-induced liver injury [Recovered/Resolved]
